FAERS Safety Report 9572516 (Version 2)
Quarter: 2013Q4

REPORT INFORMATION
  Report Type: Spontaneous
  Country: US (occurrence: US)
  Receive Date: 20131001
  Receipt Date: 20131001
  Transmission Date: 20140711
  Serious: No
  Sender: FDA-Public Use
  Company Number: US-PURDUE-USA-2012-0080811

PATIENT
  Age: 57 Year
  Sex: Female
  Weight: 108.84 kg

DRUGS (8)
  1. BUTRANS [Suspect]
     Indication: BACK PAIN
     Dosage: 10 MCG, Q1H
     Route: 062
     Dates: start: 20110527, end: 20120110
  2. BUTRANS [Suspect]
     Indication: INTERVERTEBRAL DISC DEGENERATION
  3. BUTRANS [Suspect]
     Indication: PAIN
  4. LYRICA [Concomitant]
     Indication: PRODUCT USED FOR UNKNOWN INDICATION
     Dosage: 150 MG, DAILY
  5. ROBAXIN [Concomitant]
     Indication: PRODUCT USED FOR UNKNOWN INDICATION
     Dosage: 750 MG, 3-4 TIMES DAILY
  6. PROZAC [Concomitant]
     Indication: PRODUCT USED FOR UNKNOWN INDICATION
     Dosage: 10 MG, DAILY
  7. METANX [Concomitant]
     Indication: PRODUCT USED FOR UNKNOWN INDICATION
     Dosage: 10 UNK, BID
  8. NUCYNTA [Concomitant]
     Indication: PRODUCT USED FOR UNKNOWN INDICATION
     Dosage: 50 MG, 1-3 DAILY

REACTIONS (10)
  - Application site scar [Recovered/Resolved]
  - Application site discolouration [Recovered/Resolved]
  - Sleep disorder [Recovered/Resolved]
  - Application site vesicles [Recovered/Resolved]
  - Application site pruritus [Recovered/Resolved]
  - Application site pain [Recovered/Resolved]
  - Application site irritation [Recovered/Resolved]
  - Drug effect decreased [Not Recovered/Not Resolved]
  - Application site discharge [Recovered/Resolved]
  - Back pain [Unknown]
